FAERS Safety Report 4820650-8 (Version None)
Quarter: 2005Q4

REPORT INFORMATION
  Report Type: 
  Country: None (occurrence: None)
  Receive Date: 20051104
  Receipt Date: 20051028
  Transmission Date: 20060501
  Serious: Yes (Death, Hospitalization)
  Sender: FDA-Public Use
  Company Number: PHBS2005NO15857

PATIENT
  Age: 79 Year
  Sex: Male

DRUGS (6)
  1. TEGRETOL [Suspect]
     Indication: MUSCLE SPASMS
     Dosage: 200 MG/DAY
     Route: 048
     Dates: start: 20050501, end: 20050923
  2. MAREVAN [Concomitant]
     Route: 048
     Dates: start: 20050501, end: 20050923
  3. BLOCADREN [Concomitant]
  4. XALATAN [Concomitant]
  5. SELO-ZOK [Concomitant]
     Dosage: 100 MG/DAY
     Route: 048
     Dates: start: 20050501
  6. PREDNISOLONE [Concomitant]
     Dosage: 5 MG, QID
     Route: 048
     Dates: end: 20050923

REACTIONS (20)
  - BLOOD CALCIUM DECREASED [None]
  - BLOOD CREATININE INCREASED [None]
  - BLOOD POTASSIUM DECREASED [None]
  - BLOOD PRESSURE DECREASED [None]
  - BLOOD SODIUM INCREASED [None]
  - C-REACTIVE PROTEIN INCREASED [None]
  - CLOSTRIDIUM DIFFICILE TOXIN TEST POSITIVE [None]
  - HAEMATOCRIT DECREASED [None]
  - HAEMOGLOBIN DECREASED [None]
  - HAEMORRHAGE [None]
  - INTERNATIONAL NORMALISED RATIO INCREASED [None]
  - LYMPHOCYTE COUNT DECREASED [None]
  - NEUTROPENIA [None]
  - NEUTROPHIL COUNT DECREASED [None]
  - PANCYTOPENIA [None]
  - PLATELET COUNT DECREASED [None]
  - RED BLOOD CELL COUNT DECREASED [None]
  - RED BLOOD CELL SEDIMENTATION RATE INCREASED [None]
  - SEPSIS [None]
  - WHITE BLOOD CELL COUNT DECREASED [None]
